FAERS Safety Report 25179673 (Version 1)
Quarter: 2025Q2

REPORT INFORMATION
  Report Type: Spontaneous
  Country: US (occurrence: US)
  Receive Date: 20250409
  Receipt Date: 20250409
  Transmission Date: 20250716
  Serious: No
  Sender: INCYTE
  Company Number: US-EVENT-002260

PATIENT
  Age: 17 Month

DRUGS (1)
  1. JAKAFI [Suspect]
     Active Substance: RUXOLITINIB
     Indication: Acute graft versus host disease
     Route: 065

REACTIONS (2)
  - Off label use [Not Recovered/Not Resolved]
  - Wrong technique in product usage process [Unknown]
